FAERS Safety Report 4981600-7 (Version None)
Quarter: 2006Q2

REPORT INFORMATION
  Report Type: 
  Country: None (occurrence: None)
  Receive Date: 20060421
  Receipt Date: 20060421
  Transmission Date: 20061013
  Serious: Yes (Life-Threatening)
  Sender: FDA-Public Use
  Company Number: None

PATIENT
  Age: 68 Year
  Sex: Male
  Weight: 99 kg

DRUGS (18)
  1. IRON DEXTRAN [Suspect]
     Indication: IRON DEFICIENCY ANAEMIA
     Dosage: 25 MG IV X ONE
     Route: 042
     Dates: start: 20060416
  2. PREDNISONE TAB [Concomitant]
  3. TRANDOLAPRIL [Concomitant]
  4. EZETIMIBE [Concomitant]
  5. PRAVASTATIN [Concomitant]
  6. IMDUR [Concomitant]
  7. METEPOLOL [Concomitant]
  8. ALLOPORINOL [Concomitant]
  9. AMLODIPINE [Concomitant]
  10. CLONIDINE HCL [Concomitant]
  11. INSULIN ASPARTATE [Concomitant]
  12. INSULIN GLARGINE [Concomitant]
  13. DOCUSATE [Concomitant]
  14. SENNA [Concomitant]
  15. FAMOTIDINE [Concomitant]
  16. PANTOPRAZOLE [Concomitant]
  17. WARFARIN SODIUM [Concomitant]
  18. CEFAZOLIN [Concomitant]

REACTIONS (6)
  - ANAPHYLACTIC REACTION [None]
  - CARDIAC ENZYMES INCREASED [None]
  - HYPOTENSION [None]
  - INFUSION RELATED REACTION [None]
  - OXYGEN SATURATION DECREASED [None]
  - RENAL FAILURE [None]
